FAERS Safety Report 4838580-4 (Version None)
Quarter: 2005Q4

REPORT INFORMATION
  Report Type: 
  Country: None (occurrence: None)
  Receive Date: 20051123
  Receipt Date: 20051123
  Transmission Date: 20060501
  Serious: Yes (Hospitalization)
  Sender: FDA-Public Use
  Company Number: None

PATIENT
  Age: 58 Year
  Sex: Male
  Weight: 71.4 kg

DRUGS (19)
  1. CYCLOPHOSPHAMIDE [Suspect]
  2. LISINOPRIL [Concomitant]
  3. METFORMIN HCL [Concomitant]
  4. METOPROLOL TARTRATE [Concomitant]
  5. NAPROXEN [Concomitant]
  6. DOCUSATE NA [Concomitant]
  7. OMEPRAZOLE [Concomitant]
  8. PROMETHAZINE HCL [Concomitant]
  9. MILK OF MAGNESIA TAB [Concomitant]
  10. SENNOSIDES [Concomitant]
  11. TEMAZEPAM [Concomitant]
  12. OXYCODONE AND ACETAMINOPHEN [Concomitant]
  13. FENTANYL [Concomitant]
  14. ALLOPURINOL [Concomitant]
  15. CLOPIDOGREL BISULFATE [Concomitant]
  16. SILDENAFIL CITRATE [Concomitant]
  17. CYCLOBENZAPRINE HCL [Concomitant]
  18. SIMVASTATIN [Concomitant]
  19. TRIAMCINOLONE ACETONIDE [Concomitant]

REACTIONS (2)
  - NEUTROPENIA [None]
  - PYREXIA [None]
